FAERS Safety Report 5719967-4 (Version None)
Quarter: 2008Q2

REPORT INFORMATION
  Report Type: 
  Country: None (occurrence: None)
  Receive Date: 20080428
  Receipt Date: 20070305
  Transmission Date: 20081010
  Serious: No
  Sender: FDA-Public Use
  Company Number: US-AMGEN-US213729

PATIENT
  Sex: Male
  Weight: 75.5 kg

DRUGS (12)
  1. SENSIPAR [Suspect]
     Indication: HYPERPARATHYROIDISM SECONDARY
     Route: 048
     Dates: start: 20070307, end: 20070308
  2. ALBUTEROL [Concomitant]
     Route: 065
     Dates: start: 20060208
  3. EPOGEN [Concomitant]
     Route: 065
     Dates: start: 20070310
  4. FOSRENOL [Concomitant]
     Route: 065
     Dates: start: 20070122
  5. LEVOTHROID [Concomitant]
     Route: 065
     Dates: start: 20021112
  6. METOPROLOL TARTRATE [Concomitant]
     Route: 065
     Dates: start: 20061030
  7. MIRALAX [Concomitant]
     Route: 065
     Dates: start: 20030131
  8. NORVASC [Concomitant]
     Route: 065
     Dates: start: 20060522
  9. PRILOSEC [Concomitant]
     Route: 065
     Dates: start: 20070206
  10. RENAGEL [Concomitant]
     Route: 065
     Dates: start: 20070122
  11. RENAX [Concomitant]
     Route: 065
  12. ZOCOR [Concomitant]
     Route: 065

REACTIONS (1)
  - GINGIVAL BLEEDING [None]
